FAERS Safety Report 18913840 (Version 2)
Quarter: 2021Q1

REPORT INFORMATION
  Report Type: Spontaneous
  Country: US (occurrence: US)
  Receive Date: 20210219
  Receipt Date: 20210224
  Transmission Date: 20210420
  Serious: No
  Sender: FDA-Public Use
  Company Number: NVSC2021US030083

PATIENT
  Sex: Female

DRUGS (1)
  1. EXTAVIA [Suspect]
     Active Substance: INTERFERON BETA-1B
     Indication: PRODUCT USED FOR UNKNOWN INDICATION
     Dosage: 0.3 MG, EVERY OTHER DAY
     Route: 065

REACTIONS (5)
  - Device defective [Unknown]
  - Accidental exposure to product [Unknown]
  - Application site pain [Unknown]
  - Incorrect dose administered by device [Unknown]
  - Application site haemorrhage [Unknown]
